FAERS Safety Report 6104066-2 (Version None)
Quarter: 2009Q1

REPORT INFORMATION
  Report Type: 
  Country: None (occurrence: None)
  Receive Date: 20090305
  Receipt Date: 20090221
  Transmission Date: 20090719
  Serious: Yes (Other)
  Sender: FDA-Public Use
  Company Number: US-PFIZER INC-2008158742

PATIENT
  Sex: Male
  Weight: 90.718 kg

DRUGS (7)
  1. VIAGRA [Suspect]
     Indication: ERECTILE DYSFUNCTION
     Dates: start: 19950101
  2. ASPIRIN [Concomitant]
  3. DIOVAN HCT [Concomitant]
     Dosage: UNK
  4. LIPITOR [Concomitant]
     Dosage: UNK
  5. KEPPRA [Concomitant]
  6. DILANTIN [Concomitant]
     Dosage: UNK
  7. OMEPRAZOLE [Concomitant]
     Dosage: UNK

REACTIONS (2)
  - HYPERTENSION [None]
  - INTERVERTEBRAL DISC PROTRUSION [None]
